FAERS Safety Report 6359740-X (Version None)
Quarter: 2009Q3

REPORT INFORMATION
  Report Type: 
  Country: None (occurrence: None)
  Receive Date: 20090917
  Receipt Date: 20090910
  Transmission Date: 20100115
  Serious: Yes (Hospitalization)
  Sender: FDA-Public Use
  Company Number: JP-MERCK-0907USA00615

PATIENT
  Age: 64 Year
  Sex: Male
  Weight: 63 kg

DRUGS (8)
  1. FOSAMAX [Suspect]
     Indication: OSTEOPOROSIS
     Route: 048
     Dates: start: 20090326, end: 20090625
  2. PREDNISOLONE [Concomitant]
     Indication: INTERSTITIAL LUNG DISEASE
     Route: 048
     Dates: start: 20081121
  3. THEOLONG [Concomitant]
     Indication: ASTHMA
     Route: 048
     Dates: start: 20081020
  4. TAKEPRON [Concomitant]
     Indication: REFLUX OESOPHAGITIS
     Route: 048
     Dates: start: 20081020
  5. ACTOS [Concomitant]
     Indication: DIABETES MELLITUS
     Route: 048
     Dates: start: 20081128
  6. BASEN OD [Concomitant]
     Indication: DIABETES MELLITUS
     Route: 048
     Dates: start: 20081206
  7. NEORAL [Concomitant]
     Indication: INTERSTITIAL LUNG DISEASE
     Route: 048
     Dates: start: 20090123
  8. AMARYL [Concomitant]
     Indication: DIABETES MELLITUS
     Route: 048
     Dates: start: 20090205

REACTIONS (2)
  - DYSCHEZIA [None]
  - DYSURIA [None]
